FAERS Safety Report 25431010 (Version 1)
Quarter: 2025Q2

REPORT INFORMATION
  Report Type: Report from Study
  Country: CA (occurrence: CA)
  Receive Date: 20250612
  Receipt Date: 20250612
  Transmission Date: 20250716
  Serious: Yes (Death)
  Sender: ABBVIE
  Company Number: CA-ABBVIE-6321723

PATIENT
  Age: 28 Year
  Sex: Female

DRUGS (1)
  1. SKYRIZI [Suspect]
     Active Substance: RISANKIZUMAB-RZAA
     Indication: Psoriasis
     Route: 058

REACTIONS (1)
  - End stage renal disease [Fatal]

NARRATIVE: CASE EVENT DATE: 20250505
